FAERS Safety Report 24899331 (Version 1)
Quarter: 2025Q1

REPORT INFORMATION
  Report Type: Spontaneous
  Country: US (occurrence: None)
  Receive Date: 20250128
  Receipt Date: 20250128
  Transmission Date: 20250409
  Serious: Yes (Hospitalization)
  Sender: FDA-CTU
  Company Number: None

PATIENT
  Age: 76 Year
  Sex: Female

DRUGS (11)
  1. COLLAGENASE SANTYL [Suspect]
     Active Substance: COLLAGENASE CLOSTRIDIUM HISTOLYTICUM
     Indication: Wound
     Dosage: FREQUENCY : DAILY;?
     Route: 061
     Dates: start: 20241115
  2. bupropion SR 200 mg tablet [Concomitant]
     Dates: start: 20240506
  3. diclofenac 50 mg tablet [Concomitant]
     Dates: start: 20240305
  4. ciprofloxacin 250 mg tablet [Concomitant]
     Dates: start: 20240503
  5. doxycycline hyclate 100 mg tablet [Concomitant]
     Dates: start: 20240306
  6. PRAMIPEXOLE DIHYDROCHLORIDE [Concomitant]
     Active Substance: PRAMIPEXOLE DIHYDROCHLORIDE
     Dates: start: 20231219
  7. torsemide 20 mg tablet [Concomitant]
     Dates: start: 20241204
  8. famotidine 20 mg tablet [Concomitant]
     Dates: start: 20221212
  9. spironolactone 25 mg tablet [Concomitant]
     Dates: start: 20240726
  10. HYDROCHLOROTHIAZIDE [Concomitant]
     Active Substance: HYDROCHLOROTHIAZIDE
     Dates: start: 20240402
  11. OXYCODONE HYDROCHLORIDE [Concomitant]
     Active Substance: OXYCODONE HYDROCHLORIDE
     Dates: start: 20230106

REACTIONS (3)
  - Wound [None]
  - Condition aggravated [None]
  - Cardiac failure [None]

NARRATIVE: CASE EVENT DATE: 20250127
